FAERS Safety Report 6199611-5 (Version None)
Quarter: 2009Q2

REPORT INFORMATION
  Report Type: 
  Country: None (occurrence: None)
  Receive Date: 20090522
  Receipt Date: 20090218
  Transmission Date: 20091009
  Serious: No
  Sender: FDA-Public Use
  Company Number: A0769332A

PATIENT
  Age: 60 Year
  Sex: Male

DRUGS (6)
  1. BACTROBAN [Suspect]
     Dosage: 1APP PER DAY
     Route: 045
  2. BACTROBAN [Suspect]
     Dosage: 1APP TWICE PER DAY
     Route: 061
  3. HYTRIN [Concomitant]
  4. DIOVAN [Concomitant]
  5. PLENDIL [Concomitant]
  6. ATENOLOL [Concomitant]

REACTIONS (1)
  - DRUG INEFFECTIVE [None]
